FAERS Safety Report 5069745-7 (Version None)
Quarter: 2006Q3

REPORT INFORMATION
  Report Type: 
  Country: None (occurrence: None)
  Receive Date: 20060803
  Receipt Date: 20060726
  Transmission Date: 20061208
  Serious: Yes (Hospitalization)
  Sender: FDA-Public Use
  Company Number: US-MERCK-0607USA05222

PATIENT
  Age: 78 Year
  Sex: Female

DRUGS (4)
  1. SINGULAIR [Suspect]
     Indication: ASTHMA
     Route: 048
     Dates: start: 20010904, end: 20060101
  2. PREDNISONE [Concomitant]
     Route: 048
  3. ADVAIR DISKUS 100/50 [Concomitant]
     Route: 065
  4. XANAX [Concomitant]
     Route: 065

REACTIONS (2)
  - CEREBROVASCULAR ACCIDENT [None]
  - EOSINOPHILIA [None]
